FAERS Safety Report 6282409-7 (Version None)
Quarter: 2009Q3

REPORT INFORMATION
  Report Type: 
  Country: None (occurrence: None)
  Receive Date: 20090724
  Receipt Date: 20090713
  Transmission Date: 20100115
  Serious: Yes (Other)
  Sender: FDA-Public Use
  Company Number: US-ROCHE-512242

PATIENT
  Sex: Female

DRUGS (10)
  1. PEGASYS [Suspect]
     Indication: HEPATITIS C
     Dosage: FORM: PRE-FILLED SYRINGE
     Route: 058
     Dates: start: 20070605
  2. PEGASYS [Suspect]
     Dosage: FORMULATION: PRE-FILLED SYRINGE
     Route: 058
     Dates: start: 20090219, end: 20090424
  3. PEGASYS [Suspect]
     Route: 058
  4. PEGASYS [Suspect]
     Route: 058
     Dates: end: 20090706
  5. COPEGUS [Suspect]
     Indication: HEPATITIS C
     Route: 065
     Dates: start: 20070605
  6. RIBAVIRIN [Suspect]
     Indication: HEPATITIS C
     Dosage: DIVIDED DOSES. SOMETIMES THE PATIENT TOOK 600 MG RIBAVIRIN DAILY DEPENDING ON HOW SHE FELT.
     Route: 048
     Dates: start: 20090219, end: 20090424
  7. CENTRUM SILVER [Suspect]
     Indication: DRUG USE FOR UNKNOWN INDICATION
     Route: 065
  8. HERBS AND VITAMINS [Concomitant]
     Dosage: THE PATIENT WAS TAKING UNSPECIFIED GNC VITAMINS.
  9. VITAMIN B COMPLEX CAP [Concomitant]
  10. TUMS [Concomitant]

REACTIONS (17)
  - ANGER [None]
  - BLADDER DILATATION [None]
  - BLOOD IRON DECREASED [None]
  - BRONCHITIS [None]
  - DYSPEPSIA [None]
  - FATIGUE [None]
  - HAEMOPTYSIS [None]
  - HEPATIC CIRRHOSIS [None]
  - HEPATITIS C [None]
  - IRRITABILITY [None]
  - MUSCLE SPASMS [None]
  - NERVOUSNESS [None]
  - PLATELET COUNT DECREASED [None]
  - PYREXIA [None]
  - THROMBOSIS [None]
  - VISUAL IMPAIRMENT [None]
  - WHITE BLOOD CELL COUNT DECREASED [None]
